FAERS Safety Report 8544436-6 (Version None)
Quarter: 2012Q3

REPORT INFORMATION
  Report Type: 
  Country: None (occurrence: None)
  Receive Date: 20120727
  Receipt Date: 20120717
  Transmission Date: 20120928
  Serious: Yes (Other)
  Sender: FDA-Public Use
  Company Number: AU-PFIZER INC-2012117174

PATIENT
  Sex: Male
  Weight: 180 kg

DRUGS (3)
  1. HEPARIN SODIUM [Suspect]
     Dosage: 2000 UNITS
     Route: 042
  2. LIDOCAINE [Suspect]
     Indication: LOCAL ANAESTHESIA
     Dosage: 1%, 0.5ML
     Route: 023
     Dates: start: 20101126
  3. HEPARIN SODIUM [Suspect]
     Indication: ANTICOAGULANT THERAPY
     Dosage: 4000 UNITS LOADING DOSE
     Route: 042
     Dates: start: 20101126

REACTIONS (2)
  - THROMBOSIS IN DEVICE [None]
  - WRONG DRUG ADMINISTERED [None]
